FAERS Safety Report 6987132-9 (Version None)
Quarter: 2010Q3

REPORT INFORMATION
  Report Type: 
  Country: None (occurrence: None)
  Receive Date: 20100913
  Receipt Date: 20100906
  Transmission Date: 20110219
  Serious: Yes (Death)
  Sender: FDA-Public Use
  Company Number: 2010JP003463

PATIENT
  Age: 69 Year
  Sex: Female
  Weight: 48 kg

DRUGS (17)
  1. FUNGUARD (MICAFUNGIN) INJECTION [Suspect]
     Indication: INFECTION
     Dosage: 150 MG, UID/QD, IV DRIP
     Dates: start: 20100608, end: 20100609
  2. FUNGUARD (MICAFUNGIN) INJECTION [Suspect]
     Indication: INFECTION
     Dosage: 150 MG, UID/QD, IV DRIP
     Dates: start: 20100615, end: 20100616
  3. BROACT (CEFPIROME SULFATE) INJECTION [Suspect]
     Indication: INFECTION
     Dosage: 2 G, BID, IV NOS
     Route: 042
     Dates: start: 20100614, end: 20100615
  4. MEROPENEM [Suspect]
     Indication: INFECTION
     Dosage: 1 G, BID, IV NOS
     Route: 042
     Dates: start: 20100609, end: 20100614
  5. MEROPENEM [Suspect]
     Indication: INFECTION
     Dosage: 1 G, BID, IV NOS
     Route: 042
     Dates: start: 20100616, end: 20100620
  6. FAMOTIDINE [Concomitant]
  7. ACLACINON (ACLARUBICIN HYDROCHLORIDE) [Concomitant]
  8. ALLOPURINOL [Concomitant]
  9. OXYCONTIN [Concomitant]
  10. NOVAMINE 15% [Concomitant]
  11. MAGMITT (MAGNESIUM OXIDE) [Concomitant]
  12. PURSENNID (SENNOSIDE A+B) [Concomitant]
  13. FRAGMIN [Concomitant]
  14. CYTARABINE [Concomitant]
  15. ALOXI [Concomitant]
  16. NEUPOGEN [Concomitant]
  17. DIFLUCAN [Concomitant]

REACTIONS (11)
  - ACUTE RESPIRATORY FAILURE [None]
  - ANAEMIA [None]
  - APPARENT LIFE THREATENING EVENT [None]
  - BLOOD LACTATE DEHYDROGENASE INCREASED [None]
  - GENERAL PHYSICAL HEALTH DETERIORATION [None]
  - HAEMATURIA [None]
  - HAEMOGLOBINURIA [None]
  - HAEMOLYSIS [None]
  - JAUNDICE [None]
  - PYREXIA [None]
  - RENAL FAILURE [None]
